FAERS Safety Report 7082000-9 (Version None)
Quarter: 2010Q4

REPORT INFORMATION
  Report Type: 
  Country: None (occurrence: None)
  Receive Date: 20101103
  Receipt Date: 20101025
  Transmission Date: 20110411
  Serious: Yes (Hospitalization, Other)
  Sender: FDA-Public Use
  Company Number: US-PFIZER INC-2010083036

PATIENT
  Sex: Female

DRUGS (4)
  1. LYRICA [Suspect]
     Dosage: UNK
  2. BETASERON [Suspect]
     Indication: SECONDARY PROGRESSIVE MULTIPLE SCLEROSIS
     Dosage: 8 MILLIONIU/ DAILY
     Route: 058
     Dates: start: 20100117
  3. KEPPRA [Concomitant]
     Dosage: UNK
  4. ANTIBIOTICS [Concomitant]

REACTIONS (3)
  - CONVULSION [None]
  - POLLAKIURIA [None]
  - RENAL CYST [None]
